FAERS Safety Report 4579894-5 (Version None)
Quarter: 2005Q1

REPORT INFORMATION
  Report Type: 
  Country: None (occurrence: None)
  Receive Date: 20050210
  Receipt Date: 20050201
  Transmission Date: 20050727
  Serious: Yes (Life-Threatening)
  Sender: FDA-Public Use
  Company Number: 2005024256

PATIENT
  Age: 48 Year
  Sex: Male
  Weight: 70 kg

DRUGS (2)
  1. CLINDAMYCIN PHOSPHATE [Suspect]
     Indication: ILL-DEFINED DISORDER
     Dosage: 900 MG (300 MG , 3 IN 1 D), INTRAVENOUS
     Route: 042
  2. CEFTRIAXONE [Concomitant]

REACTIONS (5)
  - DEPRESSED LEVEL OF CONSCIOUSNESS [None]
  - JAUNDICE [None]
  - LIVER DISORDER [None]
  - ORAL CANDIDIASIS [None]
  - RASH [None]
